FAERS Safety Report 14628769 (Version 1)
Quarter: 2018Q1

REPORT INFORMATION
  Report Type: Spontaneous
  Country: US (occurrence: US)
  Receive Date: 20180312
  Receipt Date: 20180312
  Transmission Date: 20180509
  Serious: Yes (Hospitalization)
  Sender: FDA-Public Use
  Company Number: None

PATIENT
  Age: 58 Year
  Sex: Male
  Weight: 84.96 kg

DRUGS (1)
  1. LENALIDOMIDE [Suspect]
     Active Substance: LENALIDOMIDE
     Indication: PLASMA CELL MYELOMA
     Route: 048
     Dates: start: 20170707, end: 20170721

REACTIONS (6)
  - Rash maculo-papular [None]
  - Metabolic acidosis [None]
  - Hypotension [None]
  - Respiratory distress [None]
  - Acute kidney injury [None]
  - Pyrexia [None]

NARRATIVE: CASE EVENT DATE: 20170717
